FAERS Safety Report 5754539-7 (Version None)
Quarter: 2008Q2

REPORT INFORMATION
  Report Type: 
  Country: None (occurrence: None)
  Receive Date: 20080530
  Receipt Date: 20080520
  Transmission Date: 20081010
  Serious: Yes (Other)
  Sender: FDA-Public Use
  Company Number: US-PFIZER INC-2008038093

PATIENT
  Sex: Male

DRUGS (3)
  1. CHANTIX [Suspect]
     Indication: SMOKING CESSATION THERAPY
     Dates: start: 20070601, end: 20080101
  2. NICOTINE [Concomitant]
     Dates: start: 20070101
  3. ALL OTHER THERAPEUTIC PRODUCTS [Concomitant]

REACTIONS (7)
  - BEDRIDDEN [None]
  - CONFUSIONAL STATE [None]
  - DEPRESSION [None]
  - DISTURBANCE IN ATTENTION [None]
  - DYSKINESIA [None]
  - MENISCUS LESION [None]
  - SMOKER [None]
